FAERS Safety Report 5592386-X (Version None)
Quarter: 2008Q1

REPORT INFORMATION
  Report Type: 
  Country: None (occurrence: None)
  Receive Date: 20080115
  Receipt Date: 20080103
  Transmission Date: 20080703
  Serious: Yes (Other)
  Sender: FDA-Public Use
  Company Number: US-PFIZER INC-2007087804

PATIENT
  Sex: Male
  Weight: 70.3 kg

DRUGS (7)
  1. DILANTIN [Interacting]
     Indication: CONVULSION PROPHYLAXIS
     Route: 048
  2. DILANTIN [Interacting]
     Indication: CONVULSION
  3. WARFARIN SODIUM [Interacting]
     Indication: THROMBOSIS PROPHYLAXIS
     Dosage: DAILY DOSE:2MG
     Route: 048
  4. INDOCIN [Suspect]
     Dosage: TEXT:1 CAPSULE
     Route: 048
     Dates: start: 20070920, end: 20070923
  5. PRIMIDONE [Concomitant]
  6. TYLENOL [Concomitant]
  7. VITAMINS [Concomitant]

REACTIONS (8)
  - ANTICONVULSANT DRUG LEVEL DECREASED [None]
  - CONVULSION [None]
  - DRUG INTERACTION [None]
  - HIP SURGERY [None]
  - HYPOTENSION [None]
  - LETHARGY [None]
  - PRURITUS [None]
  - RASH MACULAR [None]
